FAERS Safety Report 7437256-7 (Version None)
Quarter: 2011Q2

REPORT INFORMATION
  Report Type: 
  Country: None (occurrence: None)
  Receive Date: 20110426
  Receipt Date: 20110418
  Transmission Date: 20111010
  Serious: Yes (Other)
  Sender: FDA-Public Use
  Company Number: JP-BRISTOL-MYERS SQUIBB COMPANY-15514698

PATIENT
  Age: 60 Year
  Sex: Male
  Weight: 61 kg

DRUGS (14)
  1. FUROSEMIDE [Concomitant]
     Indication: PREMEDICATION
     Route: 042
     Dates: start: 20101015, end: 20101016
  2. CLOSTRIDIUM BUTYRICUM [Concomitant]
     Route: 048
     Dates: start: 20101020, end: 20101023
  3. SODIUM GUALENATE [Concomitant]
     Route: 050
     Dates: start: 20101124, end: 20110201
  4. NIFEDIPINE [Concomitant]
     Dosage: 20MG:18OCT-23OCT10(5 DYS) 40MG:24OCT-17DEC10(54 DYS) 40MG:22DEC-28JAN11(37 DYS)
     Route: 048
     Dates: start: 20101018, end: 20110128
  5. CETUXIMAB [Suspect]
     Indication: GASTROOESOPHAGEAL CANCER
     Dosage: STRENGTH:5MG/ML.NO OF INFUSIONS:13.LAST INFUSION ON 12JAN2011
     Route: 042
     Dates: start: 20101014, end: 20110112
  6. DIFLUPREDNATE [Concomitant]
     Route: 061
     Dates: start: 20101027
  7. HYDROCORTISONE [Concomitant]
     Route: 061
     Dates: start: 20101027, end: 20110201
  8. DEXAMETHASONE [Concomitant]
     Route: 061
     Dates: start: 20101104, end: 20110201
  9. XELODA [Suspect]
     Indication: GASTROOESOPHAGEAL CANCER
     Dosage: ON DAY 1-15 TABS.LAST DOSE ON 18JAN2011
     Route: 048
     Dates: start: 20101014, end: 20110118
  10. HEPARIN [Concomitant]
     Dosage: ANIMAL ORGANS
     Route: 061
     Dates: start: 20101027
  11. MAGNESIUM OXIDE [Concomitant]
     Route: 048
     Dates: start: 20110114, end: 20110128
  12. DOMPERIDONE [Concomitant]
     Dosage: 17OCT10-18OCT10 05NOV10-07NOV10
     Route: 048
     Dates: start: 20101017, end: 20101107
  13. CISPLATIN [Suspect]
     Indication: GASTROOESOPHAGEAL CANCER
     Dosage: LAST INFUSION ON 12JAN2011. ON DAY 1 OF CYCLE
     Route: 042
     Dates: start: 20101014, end: 20110112
  14. PROCHLORPERAZINE TAB [Concomitant]
     Dosage: 08NOV10-08NOV10 27NOV10-17JAN10
     Route: 048
     Dates: start: 20101108, end: 20110117

REACTIONS (1)
  - MYOCARDIAL ISCHAEMIA [None]
